FAERS Safety Report 5627901-0 (Version None)
Quarter: 2008Q1

REPORT INFORMATION
  Report Type: 
  Country: None (occurrence: None)
  Receive Date: 20080215
  Receipt Date: 20080206
  Transmission Date: 20080703
  Serious: Yes (Other)
  Sender: FDA-Public Use
  Company Number: US-JNJFOC-20080201967

PATIENT
  Sex: Female
  Weight: 77.11 kg

DRUGS (7)
  1. FENTANYL TRANSDERMAL SYSTEM [Suspect]
     Route: 062
  2. FENTANYL TRANSDERMAL SYSTEM [Suspect]
     Indication: PROCEDURAL PAIN
     Route: 062
  3. SYNTHROID [Concomitant]
     Route: 048
  4. TRICOR [Concomitant]
     Route: 048
  5. ASPIRIN [Concomitant]
     Route: 048
  6. LIPITOR [Concomitant]
     Route: 048
  7. VYTORIN [Concomitant]
     Route: 048

REACTIONS (6)
  - DRUG INEFFECTIVE [None]
  - HERNIA [None]
  - INAPPROPRIATE SCHEDULE OF DRUG ADMINISTRATION [None]
  - LUNG DISORDER [None]
  - PHARMACEUTICAL PRODUCT COMPLAINT [None]
  - WRONG TECHNIQUE IN DRUG USAGE PROCESS [None]
